FAERS Safety Report 10166624 (Version 1)
Quarter: 2014Q2

REPORT INFORMATION
  Report Type: Spontaneous
  Country: FR (occurrence: FR)
  Receive Date: 20140512
  Receipt Date: 20140512
  Transmission Date: 20141212
  Serious: Yes (Other)
  Sender: FDA-Public Use
  Company Number: FR-JNJFOC-20140504495

PATIENT
  Age: 58 Year
  Sex: Male

DRUGS (4)
  1. IXPRIM [Suspect]
     Indication: PRODUCT USED FOR UNKNOWN INDICATION
     Route: 048
     Dates: start: 201309, end: 20140322
  2. VASTEN [Concomitant]
     Route: 048
     Dates: start: 201309
  3. DUOPLAVIN [Concomitant]
     Route: 048
     Dates: start: 201309
  4. JANUMET [Concomitant]
     Route: 048
     Dates: start: 201309

REACTIONS (1)
  - Drug eruption [Not Recovered/Not Resolved]
